FAERS Safety Report 9347716 (Version 2)
Quarter: 2013Q3

REPORT INFORMATION
  Report Type: Spontaneous
  Country: US (occurrence: US)
  Receive Date: 20130614
  Receipt Date: 20130703
  Transmission Date: 20140515
  Serious: Yes (Other)
  Sender: FDA-Public Use
  Company Number: US-PFIZER INC-2013174093

PATIENT
  Age: 69 Year
  Sex: Female
  Weight: 83.9 kg

DRUGS (4)
  1. PREMARIN [Suspect]
     Indication: HORMONE THERAPY
     Dosage: UNK
     Route: 048
     Dates: end: 2000
  2. PREMARIN [Suspect]
     Indication: HORMONE THERAPY
     Dosage: 0.625 MG, THREE TIMES A WEEK
     Route: 067
     Dates: start: 2005
  3. PREMARIN [Suspect]
     Dosage: 0.625 MG, WEEKLY
     Route: 067
  4. PREMARIN [Suspect]
     Dosage: 0.625 MG, 1X/DAY
     Route: 067
     Dates: start: 201303

REACTIONS (2)
  - Vaginal haemorrhage [Unknown]
  - Ovarian cancer [Unknown]
